FAERS Safety Report 7639655-7 (Version None)
Quarter: 2011Q3

REPORT INFORMATION
  Report Type: 
  Country: None (occurrence: None)
  Receive Date: 20110727
  Receipt Date: 20110721
  Transmission Date: 20111222
  Serious: Yes (Other)
  Sender: FDA-Public Use
  Company Number: BR-PFIZER INC-2011130945

PATIENT
  Age: 64 Year
  Sex: Female
  Weight: 60 kg

DRUGS (4)
  1. VARENICLINE TARTRATE [Suspect]
     Dosage: 1 MG, EVERY 12 HOURS
     Dates: start: 20110101, end: 20110713
  2. LIVIAL [Concomitant]
     Indication: HORMONE REPLACEMENT THERAPY
     Dosage: 2.5 G, 1X/DAY
  3. VARENICLINE TARTRATE [Suspect]
     Indication: TOBACCO USER
     Dosage: UNK
     Route: 048
     Dates: start: 20110422, end: 20110101
  4. LOSARTAN POTASSIUM [Concomitant]
     Indication: HYPERTENSION
     Dosage: 50 MG, 1X/DAY
     Dates: start: 20090101

REACTIONS (1)
  - HYPERTENSION [None]
